FAERS Safety Report 9385739 (Version 1)
Quarter: 2013Q3

REPORT INFORMATION
  Report Type: Other
  Country: AT (occurrence: AT)
  Receive Date: 20130705
  Receipt Date: 20130705
  Transmission Date: 20140515
  Serious: Yes (Other)
  Sender: FDA-Public Use
  Company Number: AT-BRISTOL-MYERS SQUIBB COMPANY-19069061

PATIENT
  Age: 27 Year
  Sex: Female

DRUGS (4)
  1. ETOPOSIDE [Suspect]
     Indication: EWING^S SARCOMA
  2. IFOSFAMIDE [Suspect]
     Indication: EWING^S SARCOMA
  3. DOXORUBICIN [Suspect]
     Indication: EWING^S SARCOMA
     Dosage: ON DAYS 1 TO 3
  4. VINCRISTINE [Suspect]
     Indication: EWING^S SARCOMA
     Dosage: ON DAY1

REACTIONS (3)
  - Oligohydramnios [Unknown]
  - Abortion induced [Unknown]
  - Pregnancy [Recovered/Resolved]
